FAERS Safety Report 10175943 (Version 3)
Quarter: 2014Q2

REPORT INFORMATION
  Report Type: Report from Study
  Country: NL (occurrence: NL)
  Receive Date: 20140516
  Receipt Date: 20140613
  Transmission Date: 20141212
  Serious: Yes (Other)
  Sender: FDA-Public Use
  Company Number: NL-AMGEN INC.-NLDCT2014035664

PATIENT
  Age: 41 Year
  Sex: Male
  Weight: 106 kg

DRUGS (1)
  1. ETANERCEPT [Suspect]
     Indication: PSORIASIS
     Dosage: 1X 25 MG AND 1X 50 MG PER WEEK
     Route: 058
     Dates: start: 20130417, end: 20140318

REACTIONS (1)
  - Sarcoidosis [Recovering/Resolving]
